FAERS Safety Report 6666201-7 (Version None)
Quarter: 2010Q2

REPORT INFORMATION
  Report Type: 
  Country: None (occurrence: None)
  Receive Date: 20100402
  Receipt Date: 20100325
  Transmission Date: 20101027
  Serious: Yes (Other)
  Sender: FDA-Public Use
  Company Number: US-SANOFI-AVENTIS-2010SA018292

PATIENT
  Age: 69 Year
  Sex: Female

DRUGS (4)
  1. OPTICLICK [Suspect]
     Indication: TYPE 2 DIABETES MELLITUS
     Dates: start: 20050101
  2. LANTUS [Suspect]
     Indication: TYPE 2 DIABETES MELLITUS
     Route: 058
     Dates: start: 20050101
  3. LANTUS [Suspect]
     Dosage: DOSE:65 UNIT(S)
     Route: 058
  4. NOVOLOG [Concomitant]
     Route: 065

REACTIONS (5)
  - ANGLE CLOSURE GLAUCOMA [None]
  - BLOOD GLUCOSE INCREASED [None]
  - CATARACT [None]
  - PRODUCT QUALITY ISSUE [None]
  - VISUAL IMPAIRMENT [None]
